FAERS Safety Report 9208851 (Version 1)
Quarter: 2013Q2

REPORT INFORMATION
  Report Type: Spontaneous
  Country: US (occurrence: US)
  Receive Date: 20130404
  Receipt Date: 20130404
  Transmission Date: 20140414
  Serious: No
  Sender: FDA-Public Use
  Company Number: US-JNJFOC-20130315448

PATIENT
  Age: 32 Year
  Sex: Male
  Weight: 63.5 kg

DRUGS (3)
  1. SANDOZ FENTANYL TRANSDERMAL SYSTEM [Suspect]
     Indication: BACK PAIN
     Dosage: NDC # 0781 7240 55
     Route: 062
     Dates: start: 20130312
  2. NORCO [Concomitant]
     Indication: BREAKTHROUGH PAIN
     Dosage: 5MG/325MG/-/5MG/325MG/EVERY 8 HOURS/PO
     Route: 048
     Dates: start: 201302
  3. XANAX [Concomitant]
     Indication: ANXIETY
     Route: 048
     Dates: start: 2012

REACTIONS (4)
  - Product quality issue [Not Recovered/Not Resolved]
  - Wrong technique in drug usage process [Recovered/Resolved]
  - Drug ineffective [Recovered/Resolved]
  - Wrong technique in drug usage process [Recovered/Resolved]
